FAERS Safety Report 13683221 (Version 1)
Quarter: 2017Q2

REPORT INFORMATION
  Report Type: Spontaneous
  Country: US (occurrence: US)
  Receive Date: 20170623
  Receipt Date: 20170623
  Transmission Date: 20170830
  Serious: No
  Sender: FDA-Public Use
  Company Number: US-MALLINCKRODT-T201701740

PATIENT
  Age: 44 Year
  Sex: Female

DRUGS (36)
  1. LIOTHYRONINE [Concomitant]
     Active Substance: LIOTHYRONINE
  2. METHOTREXATE. [Concomitant]
     Active Substance: METHOTREXATE
  3. BACLOFEN. [Concomitant]
     Active Substance: BACLOFEN
  4. METOLAZONE. [Concomitant]
     Active Substance: METOLAZONE
  5. DONEPEZIL. [Concomitant]
     Active Substance: DONEPEZIL
  6. MEPERITAB [Concomitant]
     Active Substance: MEPERIDINE HYDROCHLORIDE
  7. H.P. ACTHAR [Suspect]
     Active Substance: CORTICOTROPIN
     Indication: MULTIPLE SCLEROSIS
     Dosage: 80 UNITS WEEKLY
     Route: 058
     Dates: start: 20161008
  8. NITROFURANTIN [Concomitant]
     Active Substance: NITROFURANTOIN
  9. OSMOPREP [Concomitant]
     Active Substance: SODIUM PHOSPHATE, DIBASIC, ANHYDROUS\SODIUM PHOSPHATE, MONOBASIC, MONOHYDRATE
  10. BUPROPION. [Concomitant]
     Active Substance: BUPROPION
  11. SPIRONOLACTON [Concomitant]
     Active Substance: SPIRONOLACTONE
  12. HYDROXYZINE [Concomitant]
     Active Substance: HYDROXYZINE HYDROCHLORIDE
  13. SMZ-TMP [Concomitant]
     Active Substance: SULFAMETHOXAZOLE\TRIMETHOPRIM
  14. SYNTHROID [Concomitant]
     Active Substance: LEVOTHYROXINE SODIUM
  15. PRAMIPEXOLE. [Concomitant]
     Active Substance: PRAMIPEXOLE
  16. BACTRIM [Concomitant]
     Active Substance: SULFAMETHOXAZOLE\TRIMETHOPRIM
  17. ZANTAC [Concomitant]
     Active Substance: RANITIDINE HYDROCHLORIDE
  18. CORDRAN [Concomitant]
     Active Substance: FLURANDRENOLIDE
  19. TRIAZOLAM. [Concomitant]
     Active Substance: TRIAZOLAM
  20. ESOMEPRA [Concomitant]
     Active Substance: ESOMEPRAZOLE
  21. TOPIRAMATE. [Concomitant]
     Active Substance: TOPIRAMATE
  22. PREDNISONE. [Concomitant]
     Active Substance: PREDNISONE
  23. RESTASIS [Concomitant]
     Active Substance: CYCLOSPORINE
  24. ESTRADIOL. [Concomitant]
     Active Substance: ESTRADIOL
  25. MELOXICAM. [Concomitant]
     Active Substance: MELOXICAM
  26. METRONIDAZOLE. [Concomitant]
     Active Substance: METRONIDAZOLE
  27. BISACODYL. [Concomitant]
     Active Substance: BISACODYL
  28. FOLIC ACID. [Concomitant]
     Active Substance: FOLIC ACID
  29. VITAMIN D3 [Concomitant]
     Active Substance: CHOLECALCIFEROL
  30. TEMAZEPAM. [Concomitant]
     Active Substance: TEMAZEPAM
  31. MENEST [Concomitant]
     Active Substance: ESTROGENS, ESTERIFIED
  32. CELEBREX [Concomitant]
     Active Substance: CELECOXIB
  33. HYDROCODONE BITARTRATE AND ACETAMINOPHEN [Concomitant]
     Active Substance: ACETAMINOPHEN\HYDROCODONE BITARTRATE
  34. VITAMIN B12 [Concomitant]
     Active Substance: CYANOCOBALAMIN
  35. FLUTICASONE. [Concomitant]
     Active Substance: FLUTICASONE
  36. ARMODAFINIL. [Concomitant]
     Active Substance: ARMODAFINIL

REACTIONS (3)
  - Pain in extremity [Not Recovered/Not Resolved]
  - Mobility decreased [Not Recovered/Not Resolved]
  - Multiple sclerosis relapse [Not Recovered/Not Resolved]

NARRATIVE: CASE EVENT DATE: 201704
